FAERS Safety Report 8893858 (Version 1)
Quarter: 2012Q4

REPORT INFORMATION
  Report Type: 
  Country: FR (occurrence: FR)
  Receive Date: 20121107
  Receipt Date: 20121107
  Transmission Date: 20130627
  Serious: Yes (Hospitalization)
  Sender: FDA-Public Use
  Company Number: FR-VERTEX PHARMACEUTICAL INC.-000000000000000430

PATIENT
  Age: 66 Year
  Sex: Male
  Weight: 57 kg

DRUGS (7)
  1. TELAPREVIR [Suspect]
     Indication: HEPATITIS C
     Dosage: Dosage Form: Tablet
     Route: 048
     Dates: start: 20110825, end: 20111027
  2. COPEGUS [Suspect]
     Indication: HEPATITIS C
     Dosage: 400-0-200 mg
     Route: 048
     Dates: start: 20111019, end: 20111031
  3. COPEGUS [Suspect]
     Dosage: 800 mg, qd
     Route: 048
     Dates: start: 20110825, end: 20111018
  4. COPEGUS [Suspect]
     Dosage: 400 mg, bid
     Route: 048
     Dates: start: 20111101, end: 20111122
  5. COPEGUS [Suspect]
     Dosage: 600 mg, qd
     Route: 048
     Dates: start: 20111123, end: 201207
  6. PEGASYS [Suspect]
     Indication: HEPATITIS C
     Dosage: 180 ?g, qw
     Route: 058
     Dates: start: 20110825, end: 201207
  7. NEORECORMON [Concomitant]
     Indication: ANAEMIA
     Dosage: 30000 IU, qw
     Dates: start: 20111007

REACTIONS (12)
  - Haemolytic anaemia [Recovered/Resolved]
  - Anaemia [Recovered/Resolved]
  - Hepatitis C [None]
  - Refractory cytopenia with unilineage dysplasia [None]
  - General physical health deterioration [None]
  - Blood pressure diastolic decreased [None]
  - Leukopenia [None]
  - Neutropenia [None]
  - Thrombocytopenia [None]
  - Aspartate aminotransferase increased [None]
  - Alanine aminotransferase increased [None]
  - Haemorrhoids [None]
